FAERS Safety Report 10256018 (Version 3)
Quarter: 2014Q3

REPORT INFORMATION
  Report Type: Spontaneous
  Country: US (occurrence: JP)
  Receive Date: 20140624
  Receipt Date: 20140721
  Transmission Date: 20150326
  Serious: Yes (Other)
  Sender: FDA-Public Use
  Company Number: PHHY2014JP066809

PATIENT
  Age: 68 Year
  Sex: Male

DRUGS (10)
  1. TRAZENTA [Concomitant]
     Active Substance: LINAGLIPTIN
     Dosage: 5 MG, UNK
     Route: 048
     Dates: start: 20130606
  2. TSUMURA BYAKKOKANINJINTO [Concomitant]
     Dosage: 7.5 MG, UNK
     Route: 048
     Dates: start: 20130606
  3. ETHYL LOFLAZEPATE [Concomitant]
     Active Substance: ETHYL LOFLAZEPATE
     Dosage: 2 MG, UNK
     Route: 048
     Dates: start: 20130606
  4. MAGLAX [Concomitant]
     Active Substance: MAGNESIUM OXIDE
     Dosage: 990 MG, UNK
     Dates: start: 20130606
  5. EXELON PATCH [Suspect]
     Active Substance: RIVASTIGMINE
     Indication: PRESENILE DEMENTIA
     Dosage: 4.5 MG, DAILY
     Route: 062
     Dates: start: 20140123, end: 20140219
  6. EXELON PATCH [Suspect]
     Active Substance: RIVASTIGMINE
     Dosage: 18 MG, DAILY
     Route: 062
     Dates: start: 20140501, end: 20140521
  7. MEMARY [Concomitant]
     Active Substance: MEMANTINE HYDROCHLORIDE
     Dosage: 20 MG, UNK
     Route: 048
     Dates: start: 20130606
  8. EXELON PATCH [Suspect]
     Active Substance: RIVASTIGMINE
     Indication: DEMENTIA ALZHEIMER^S TYPE
     Dosage: 9 MG, DAILY
     Route: 062
     Dates: start: 20140220, end: 20140402
  9. SENNA [Concomitant]
     Active Substance: SENNA LEAF\SENNOSIDES\SENNOSIDES A AND B
     Dosage: 0.5 G, UNK
     Dates: start: 20130606
  10. EXELON PATCH [Suspect]
     Active Substance: RIVASTIGMINE
     Dosage: 13.5 MG,DAILY
     Route: 062
     Dates: start: 20140403, end: 20140430

REACTIONS (9)
  - Dermatitis [Recovering/Resolving]
  - Oedema peripheral [Recovered/Resolved]
  - Application site erythema [Recovered/Resolved]
  - Gait disturbance [Recovered/Resolved]
  - Pain in extremity [Recovering/Resolving]
  - Skin ulcer [Recovering/Resolving]
  - Pruritus [Recovered/Resolved]
  - Cellulitis [Recovered/Resolved]
  - Application site vesicles [Recovering/Resolving]

NARRATIVE: CASE EVENT DATE: 20140515
